FAERS Safety Report 7255018 (Version 6)
Quarter: 2013Q1

REPORT INFORMATION
  Report Type: Report from Study
  Country: CN (occurrence: CN)
  Receive Date: 20100125
  Receipt Date: 20130205
  Transmission Date: 20140127
  Serious: Yes (Hospitalization, Other)
  Sender: FDA-Public Use
  Company Number: CN-BAYER-201011883GPV

PATIENT
  Age: 61 Year
  Sex: Male
  Weight: 51 kg

DRUGS (54)
  1. ERLOTINIB [Suspect]
     Indication: HEPATOCELLULAR CARCINOMA
     Dosage: 150 MG, QD
     Route: 048
     Dates: start: 20091021, end: 20091201
  2. ERLOTINIB [Suspect]
     Indication: HEPATOCELLULAR CARCINOMA
     Dosage: 150 MG, QD
     Route: 048
     Dates: start: 20091202, end: 20091206
  3. ERLOTINIB [Suspect]
     Indication: HEPATOCELLULAR CARCINOMA
     Dosage: 100 MG, QD
     Route: 048
     Dates: start: 20091207, end: 20100112
  4. ERLOTINIB [Suspect]
     Indication: HEPATOCELLULAR CARCINOMA
     Dosage: 100 MG, QD
     Route: 048
     Dates: start: 20100113, end: 20100113
  5. ERLOTINIB [Suspect]
     Indication: HEPATOCELLULAR CARCINOMA
     Dosage: 100 MG, QD
     Route: 048
     Dates: start: 20100125, end: 20100224
  6. ERLOTINIB [Suspect]
     Indication: HEPATOCELLULAR CARCINOMA
     Dosage: 100 MG, QD
     Route: 048
     Dates: start: 20100225, end: 20100407
  7. ERLOTINIB [Suspect]
     Indication: HEPATOCELLULAR CARCINOMA
     Dosage: 100 MG, QD
     Route: 048
     Dates: start: 20100408, end: 20100523
  8. ERLOTINIB [Suspect]
     Indication: HEPATOCELLULAR CARCINOMA
     Dosage: 100 MG, QD
     Route: 048
     Dates: start: 20100524, end: 20100629
  9. ERLOTINIB [Suspect]
     Indication: HEPATOCELLULAR CARCINOMA
     Dosage: 100 MG, QD
     Route: 048
     Dates: start: 20100630, end: 20100811
  10. ERLOTINIB [Suspect]
     Indication: HEPATOCELLULAR CARCINOMA
     Dosage: 100 MG, QD
     Route: 048
     Dates: start: 20100812, end: 20100902
  11. ERLOTINIB [Suspect]
     Indication: HEPATOCELLULAR CARCINOMA
     Dosage: 50 MG, QD
     Route: 048
     Dates: start: 20100928, end: 20101109
  12. ERLOTINIB [Suspect]
     Indication: HEPATOCELLULAR CARCINOMA
     Dosage: 50 MG, QD
     Route: 048
     Dates: start: 20101110, end: 20101213
  13. ERLOTINIB [Suspect]
     Indication: HEPATOCELLULAR CARCINOMA
     Dosage: 50 MG, QD
     Route: 048
     Dates: start: 20101214, end: 20110123
  14. ERLOTINIB [Suspect]
     Indication: HEPATOCELLULAR CARCINOMA
     Dosage: 50 MG, QD
     Route: 048
     Dates: start: 20110124, end: 20110307
  15. ERLOTINIB [Suspect]
     Indication: HEPATOCELLULAR CARCINOMA
     Dosage: 50 MG, QD
     Route: 048
     Dates: start: 20110308, end: 20110421
  16. ERLOTINIB [Suspect]
     Indication: HEPATOCELLULAR CARCINOMA
     Dosage: 50 MG, QD
     Route: 048
     Dates: start: 20110422, end: 20110602
  17. ERLOTINIB [Suspect]
     Indication: HEPATOCELLULAR CARCINOMA
     Dosage: 50 MG, QD
     Route: 048
     Dates: start: 20110603, end: 20110714
  18. ERLOTINIB [Suspect]
     Indication: HEPATOCELLULAR CARCINOMA
     Dosage: 50 MG, QD
     Route: 048
     Dates: start: 20110715, end: 20110825
  19. ERLOTINIB [Suspect]
     Indication: HEPATOCELLULAR CARCINOMA
     Dosage: 50 MG, QD
     Route: 048
     Dates: start: 20110826, end: 20111012
  20. ERLOTINIB [Suspect]
     Indication: HEPATOCELLULAR CARCINOMA
     Dosage: 50 MG, QD
     Route: 048
     Dates: start: 20111013, end: 20111127
  21. ERLOTINIB [Suspect]
     Indication: HEPATOCELLULAR CARCINOMA
     Dosage: 50 MG, QD
     Route: 048
     Dates: start: 20111128, end: 20120102
  22. ERLOTINIB [Suspect]
     Indication: HEPATOCELLULAR CARCINOMA
     Dosage: 50 MG, QD
     Route: 048
     Dates: start: 20120103, end: 20120212
  23. ERLOTINIB [Suspect]
     Indication: HEPATOCELLULAR CARCINOMA
     Dosage: 50 MG, QD
     Route: 048
     Dates: start: 20120213, end: 20120325
  24. ERLOTINIB [Suspect]
     Indication: HEPATOCELLULAR CARCINOMA
     Dosage: 50 MG, QD
     Route: 048
     Dates: start: 20120326, end: 20120507
  25. ERLOTINIB [Suspect]
     Indication: HEPATOCELLULAR CARCINOMA
     Dosage: 50 MG, QD
     Route: 048
     Dates: start: 20120508, end: 20120618
  26. ERLOTINIB [Suspect]
     Indication: HEPATOCELLULAR CARCINOMA
     Dosage: 50 MG, QD
     Route: 048
     Dates: start: 20120619, end: 20120724
  27. SORAFENIB (RAF KINASE INHIBITOR) [Suspect]
     Indication: HEPATOCELLULAR CARCINOMA
     Dosage: 400 MG, BID
     Route: 048
     Dates: start: 20091021, end: 20091201
  28. SORAFENIB (RAF KINASE INHIBITOR) [Suspect]
     Indication: HEPATOCELLULAR CARCINOMA
     Dosage: 400 MG, BID
     Route: 048
     Dates: start: 20091202, end: 20100112
  29. SORAFENIB (RAF KINASE INHIBITOR) [Suspect]
     Indication: HEPATOCELLULAR CARCINOMA
     Dosage: 400 MG, BID
     Route: 048
     Dates: start: 20100113, end: 20100113
  30. SORAFENIB (RAF KINASE INHIBITOR) [Suspect]
     Indication: HEPATOCELLULAR CARCINOMA
     Dosage: 400 MG, QD
     Route: 048
     Dates: start: 20100125, end: 20100224
  31. SORAFENIB (RAF KINASE INHIBITOR) [Suspect]
     Indication: HEPATOCELLULAR CARCINOMA
     Dosage: 400 MG, QD
     Route: 048
     Dates: start: 20100225, end: 20100407
  32. SORAFENIB (RAF KINASE INHIBITOR) [Suspect]
     Indication: HEPATOCELLULAR CARCINOMA
     Dosage: 400 MG, QD
     Route: 048
     Dates: start: 20100408, end: 20100523
  33. SORAFENIB (RAF KINASE INHIBITOR) [Suspect]
     Indication: HEPATOCELLULAR CARCINOMA
     Dosage: 400 MG, QD
     Route: 048
     Dates: start: 20100524, end: 20100629
  34. SORAFENIB (RAF KINASE INHIBITOR) [Suspect]
     Indication: HEPATOCELLULAR CARCINOMA
     Dosage: 400 MG, QD
     Route: 048
     Dates: start: 20100630, end: 20100811
  35. SORAFENIB (RAF KINASE INHIBITOR) [Suspect]
     Indication: HEPATOCELLULAR CARCINOMA
     Dosage: 400 MG, QD
     Route: 048
     Dates: start: 20100812, end: 20100902
  36. SORAFENIB (RAF KINASE INHIBITOR) [Suspect]
     Indication: HEPATOCELLULAR CARCINOMA
     Dosage: 400 MG, QD
     Route: 048
     Dates: start: 20100928, end: 20101107
  37. SORAFENIB (RAF KINASE INHIBITOR) [Suspect]
     Indication: HEPATOCELLULAR CARCINOMA
     Dosage: 400 MG, QD
     Route: 048
     Dates: start: 20101108, end: 20101213
  38. SORAFENIB (RAF KINASE INHIBITOR) [Suspect]
     Indication: HEPATOCELLULAR CARCINOMA
     Dosage: 400 MG, QD
     Route: 048
     Dates: start: 20101214, end: 20110123
  39. SORAFENIB (RAF KINASE INHIBITOR) [Suspect]
     Indication: HEPATOCELLULAR CARCINOMA
     Dosage: 400 MG, QD
     Route: 048
     Dates: start: 20110124, end: 20110307
  40. SORAFENIB (RAF KINASE INHIBITOR) [Suspect]
     Indication: HEPATOCELLULAR CARCINOMA
     Dosage: 400 MG, QD
     Route: 048
     Dates: start: 20110308, end: 20110421
  41. SORAFENIB (RAF KINASE INHIBITOR) [Suspect]
     Indication: HEPATOCELLULAR CARCINOMA
     Dosage: 400 MG, QD
     Route: 048
     Dates: start: 20110422, end: 20110602
  42. SORAFENIB (RAF KINASE INHIBITOR) [Suspect]
     Indication: HEPATOCELLULAR CARCINOMA
     Dosage: 400 MG, QD
     Route: 048
     Dates: start: 20110603, end: 20110714
  43. SORAFENIB (RAF KINASE INHIBITOR) [Suspect]
     Indication: HEPATOCELLULAR CARCINOMA
     Dosage: 400 MG, QD
     Route: 048
     Dates: start: 20110715, end: 20110825
  44. SORAFENIB (RAF KINASE INHIBITOR) [Suspect]
     Indication: HEPATOCELLULAR CARCINOMA
     Dosage: 400 MG, QD
     Route: 048
     Dates: start: 20110826, end: 20111012
  45. SORAFENIB (RAF KINASE INHIBITOR) [Suspect]
     Indication: HEPATOCELLULAR CARCINOMA
     Dosage: 400 MG, QD
     Route: 048
     Dates: start: 20111013, end: 20111127
  46. SORAFENIB (RAF KINASE INHIBITOR) [Suspect]
     Indication: HEPATOCELLULAR CARCINOMA
     Dosage: 400 MG, QD
     Route: 048
     Dates: start: 20111128, end: 20120102
  47. SORAFENIB (RAF KINASE INHIBITOR) [Suspect]
     Indication: HEPATOCELLULAR CARCINOMA
     Dosage: 400 MG, QD
     Route: 048
     Dates: start: 20120103, end: 20120212
  48. SORAFENIB (RAF KINASE INHIBITOR) [Suspect]
     Indication: HEPATOCELLULAR CARCINOMA
     Dosage: 400 MG, QD
     Route: 048
     Dates: start: 20120213, end: 20120325
  49. SORAFENIB (RAF KINASE INHIBITOR) [Suspect]
     Indication: HEPATOCELLULAR CARCINOMA
     Dosage: 400 MG, QD
     Route: 048
     Dates: start: 20120326, end: 20120507
  50. SORAFENIB (RAF KINASE INHIBITOR) [Suspect]
     Indication: HEPATOCELLULAR CARCINOMA
     Dosage: 400 MG, QD
     Route: 048
     Dates: start: 20120508, end: 20120618
  51. SORAFENIB (RAF KINASE INHIBITOR) [Suspect]
     Indication: HEPATOCELLULAR CARCINOMA
     Dosage: 400 MG, QD
     Route: 048
     Dates: start: 20120619, end: 20120801
  52. VITAMIN B [Concomitant]
     Indication: SUPPLEMENTATION THERAPY
     Dosage: DAILY DOSE 200 MG
     Dates: start: 20091203, end: 20091204
  53. VITAMIN C [Concomitant]
     Indication: VITAMIN SUPPLEMENTATION
     Dosage: DAILY DOSE 2 G
     Dates: start: 20091203, end: 20091204
  54. HERBAL PREPARATION [Concomitant]
     Indication: THERAPEUTIC PROCEDURE
     Dosage: DAILY DOSE 50 ML
     Dates: start: 20091203, end: 20091204

REACTIONS (2)
  - Hypokalaemia [Recovered/Resolved]
  - Fatigue [Not Recovered/Not Resolved]
